FAERS Safety Report 18601845 (Version 2)
Quarter: 2021Q1

REPORT INFORMATION
  Report Type: Spontaneous
  Country: US (occurrence: US)
  Receive Date: 20201210
  Receipt Date: 20210126
  Transmission Date: 20210419
  Serious: Yes (Life-Threatening, Hospitalization)
  Sender: FDA-Public Use
  Company Number: US-TEVA-2020-US-1856345

PATIENT
  Age: 68 Year
  Sex: Male

DRUGS (5)
  1. NOREPINEPHRINE. [Concomitant]
     Active Substance: NOREPINEPHRINE
     Indication: BLOOD PRESSURE MANAGEMENT
     Route: 065
  2. METHYLPREDNISOLONE. [Suspect]
     Active Substance: METHYLPREDNISOLONE
     Indication: COVID-19 PNEUMONIA
     Dosage: 120 MILLIGRAM DAILY; ON HOSPITAL DAYS 4?6, 8?10 AND 12?13
     Route: 042
  3. TOCILIZUMAB. [Suspect]
     Active Substance: TOCILIZUMAB
     Indication: COVID-19 PNEUMONIA
     Dosage: ONE DOSE
     Route: 042
  4. HYDROXYCHLOROQUINE [Suspect]
     Active Substance: HYDROXYCHLOROQUINE
     Dosage: 400 MILLIGRAM DAILY; (RECEIVED HYDROXYCHLOROQUINE FOR 5 DAYS IN TOTAL)
     Route: 048
  5. HYDROXYCHLOROQUINE [Suspect]
     Active Substance: HYDROXYCHLOROQUINE
     Indication: COVID-19 PNEUMONIA
     Dosage: 800 MILLIGRAM DAILY; LOADING DOSE (RECEIVED HYDROXYCHLOROQUINE FOR 5 DAYS IN TOTAL)
     Route: 048

REACTIONS (5)
  - Disseminated strongyloidiasis [Recovering/Resolving]
  - Haemodynamic instability [Recovering/Resolving]
  - Off label use [Unknown]
  - Bacteraemia [Unknown]
  - Meningitis bacterial [Unknown]
